FAERS Safety Report 18947738 (Version 1)
Quarter: 2021Q1

REPORT INFORMATION
  Report Type: Spontaneous
  Country: FR (occurrence: FR)
  Receive Date: 20210226
  Receipt Date: 20210226
  Transmission Date: 20210420
  Serious: Yes (Hospitalization)
  Sender: FDA-Public Use
  Company Number: FR-LUNDBECK-DKLU3029313

PATIENT
  Age: 2 Year
  Sex: Male

DRUGS (2)
  1. URBANYL [Suspect]
     Active Substance: CLOBAZAM
     Indication: EPILEPSY
     Route: 048
     Dates: start: 20200424, end: 202101
  2. EPIDYOLEX [Interacting]
     Active Substance: CANNABIDIOL
     Indication: EPILEPSY
     Route: 048
     Dates: start: 202012, end: 20210112

REACTIONS (7)
  - Dysphagia [Recovered/Resolved]
  - Hypersomnia [Recovered/Resolved]
  - Mastication disorder [Recovered/Resolved]
  - General physical health deterioration [Recovered/Resolved]
  - Hypotonia [Recovered/Resolved]
  - Drug interaction [Unknown]
  - Decreased appetite [Recovered/Resolved]

NARRATIVE: CASE EVENT DATE: 202101
